FAERS Safety Report 9314664 (Version 1)
Quarter: 2013Q2

REPORT INFORMATION
  Report Type: Spontaneous
  Country: US (occurrence: US)
  Receive Date: 20130529
  Receipt Date: 20130529
  Transmission Date: 20140414
  Serious: Yes (Other)
  Sender: FDA-Public Use
  Company Number: US-BRISTOL-MYERS SQUIBB COMPANY-18943043

PATIENT
  Age: 75 Year
  Sex: Male
  Weight: 81.63 kg

DRUGS (10)
  1. ELIQUIS [Suspect]
     Dosage: TABS?SAMPLES EQUALING 14 TABLETS.
     Dates: start: 20130522
  2. METOPROLOL [Concomitant]
  3. RANEXA [Concomitant]
  4. ASPIRINE [Concomitant]
  5. ENALAPRIL [Concomitant]
  6. ATORVASTATIN [Concomitant]
  7. ISOSORBIDE MONONITRATE [Concomitant]
  8. GARLIC [Concomitant]
  9. FISH OIL [Concomitant]
  10. CENTRUM SILVER [Concomitant]

REACTIONS (1)
  - Headache [Unknown]
